FAERS Safety Report 8231166-3 (Version None)
Quarter: 2012Q1

REPORT INFORMATION
  Report Type: 
  Country: None (occurrence: None)
  Receive Date: 20120323
  Receipt Date: 20120323
  Transmission Date: 20120608
  Serious: Yes (Hospitalization)
  Sender: FDA-Public Use
  Company Number: None

PATIENT
  Age: 71 Year
  Sex: Female
  Weight: 83.914 kg

DRUGS (1)
  1. FLECAINIDE ACETATE [Suspect]
     Dosage: 100.0 MG
     Route: 048

REACTIONS (7)
  - EYE SWELLING [None]
  - PLANTAR ERYTHEMA [None]
  - HYPOAESTHESIA [None]
  - ERYTHEMA [None]
  - CHOKING SENSATION [None]
  - PALMAR ERYTHEMA [None]
  - ERYTHEMA OF EYELID [None]
